FAERS Safety Report 8965616 (Version 2)
Quarter: 2013Q1

REPORT INFORMATION
  Report Type: Spontaneous
  Country: PT (occurrence: None)
  Receive Date: 20121205
  Receipt Date: 20121218
  Transmission Date: 20140127
  Serious: Yes (Hospitalization, Other)
  Sender: FDA-Public Use
  Company Number: AUR-APL-2012-05134

PATIENT
  Age: 72 Year
  Sex: Male

DRUGS (6)
  1. CARVEDILOL (CARVEDILOL) [Suspect]
     Indication: PRODUCT USED FOR UNKNOWN INDICATION
  2. PERINDOPRIL [Suspect]
     Indication: PRODUCT USED FOR UNKNOWN INDICATION
  3. ROSUVASTATIN (ROSUVASTATIN) [Suspect]
     Indication: PRODUCT USED FOR UNKNOWN INDICATION
  4. CLOPIDOGREL [Suspect]
     Indication: PRODUCT USED FOR UNKNOWN INDICATION
  5. BUDESONIDE FORMOTEROL (BUDESONIDE W/FORMOTEROL FUMARATE) [Concomitant]
  6. TRIFLUSAL [Suspect]

REACTIONS (8)
  - Lactose intolerance [None]
  - Flatulence [None]
  - Abdominal pain [None]
  - Abdominal distension [None]
  - Diarrhoea [None]
  - Nausea [None]
  - Fatigue [None]
  - Dyspnoea [None]
